FAERS Safety Report 7009955-2 (Version None)
Quarter: 2010Q3

REPORT INFORMATION
  Report Type: 
  Country: None (occurrence: None)
  Receive Date: 20100909
  Receipt Date: 20100611
  Transmission Date: 20110219
  Serious: Yes (Hospitalization, Disabling)
  Sender: FDA-Public Use
  Company Number: 2010SP033219

PATIENT
  Age: 19 Year
  Sex: Male

DRUGS (2)
  1. SAPHRIS [Suspect]
     Indication: SCHIZOPHRENIA
     Dosage: ; SL
     Route: 060
  2. DEPAKOTE [Concomitant]

REACTIONS (1)
  - CONVULSION [None]
